FAERS Safety Report 9798707 (Version 1)
Quarter: 2014Q1

REPORT INFORMATION
  Report Type: Spontaneous
  Country: US (occurrence: US)
  Receive Date: 20140106
  Receipt Date: 20140106
  Transmission Date: 20141002
  Serious: No
  Sender: FDA-Public Use
  Company Number: US-GILEAD-2010-0029899

PATIENT
  Age: 76 Year
  Sex: Female
  Weight: 45.36 kg

DRUGS (15)
  1. LETAIRIS [Suspect]
     Indication: PULMONARY ARTERIAL HYPERTENSION
     Route: 048
     Dates: start: 20100401
  2. CENTRUM MULTIVITAMIN [Concomitant]
  3. COREG [Concomitant]
  4. XANAX [Concomitant]
  5. LASIX [Concomitant]
  6. ALTACE [Concomitant]
  7. IBU [Concomitant]
  8. TYLENOL EX [Concomitant]
  9. VITAMIN D [Concomitant]
  10. TUMS [Concomitant]
  11. CALCITONIN-SALMON [Concomitant]
  12. POTASSIUM [Concomitant]
  13. ASPIRIN [Concomitant]
  14. CALCIUM [Concomitant]
  15. DILT-CD [Concomitant]

REACTIONS (1)
  - Rhinorrhoea [Unknown]
